FAERS Safety Report 24868941 (Version 1)
Quarter: 2025Q1

REPORT INFORMATION
  Report Type: Spontaneous
  Country: FR (occurrence: FR)
  Receive Date: 20250121
  Receipt Date: 20250121
  Transmission Date: 20250408
  Serious: Yes (Hospitalization)
  Sender: MYLAN
  Company Number: None

PATIENT
  Age: 23 Year
  Sex: Male
  Weight: 86 kg

DRUGS (8)
  1. CEFAZOLIN [Suspect]
     Active Substance: CEFAZOLIN
     Indication: Antibiotic therapy
     Route: 042
     Dates: start: 20241209, end: 20241209
  2. SUFENTANIL [Suspect]
     Active Substance: SUFENTANIL
     Indication: Antibiotic therapy
     Route: 042
     Dates: start: 20241209, end: 20241209
  3. PROPOFOL [Suspect]
     Active Substance: PROPOFOL
     Indication: Antibiotic therapy
     Route: 042
     Dates: start: 20241209, end: 20241209
  4. DEXAMETHASONE [Suspect]
     Active Substance: DEXAMETHASONE
     Indication: Antibiotic therapy
     Route: 042
     Dates: start: 20241209, end: 20241209
  5. KETAMINE [Suspect]
     Active Substance: KETAMINE
     Indication: Antibiotic therapy
     Route: 042
     Dates: start: 20241209, end: 20241209
  6. LIDOCAINE HYDROCHLORIDE [Suspect]
     Active Substance: LIDOCAINE HYDROCHLORIDE
     Indication: Antibiotic therapy
     Route: 042
     Dates: start: 20241209, end: 20241209
  7. TRANEXAMIC ACID [Suspect]
     Active Substance: TRANEXAMIC ACID
     Indication: Antibiotic therapy
     Route: 042
     Dates: start: 20241209, end: 20241209
  8. ROPIVACAINE HYDROCHLORIDE [Concomitant]
     Active Substance: ROPIVACAINE HYDROCHLORIDE
     Route: 065
     Dates: start: 20241209, end: 20241209

REACTIONS (1)
  - Bronchospasm [Recovered/Resolved]

NARRATIVE: CASE EVENT DATE: 20241209
